FAERS Safety Report 10168675 (Version 1)
Quarter: 2014Q2

REPORT INFORMATION
  Report Type: Spontaneous
  Country: US (occurrence: None)
  Receive Date: 20140512
  Receipt Date: 20140512
  Transmission Date: 20141212
  Serious: Yes (Other)
  Sender: FDA-Public Use
  Company Number: None

PATIENT
  Age: 48 Year
  Sex: Female
  Weight: 63.5 kg

DRUGS (1)
  1. SEPTOCAINE [Suspect]
     Indication: DENTAL CARE
     Dates: start: 20131120

REACTIONS (6)
  - Pain [None]
  - Drug ineffective [None]
  - Nerve injury [None]
  - Hypoaesthesia oral [None]
  - Glossodynia [None]
  - Glossodynia [None]
